FAERS Safety Report 14928026 (Version 1)
Quarter: 2018Q2

REPORT INFORMATION
  Report Type: Spontaneous
  Country: FR (occurrence: FR)
  Receive Date: 20180523
  Receipt Date: 20180523
  Transmission Date: 20180711
  Serious: Yes (Other)
  Sender: FDA-Public Use
  Company Number: FR-PFIZER INC-2018206413

PATIENT
  Sex: Female

DRUGS (5)
  1. IBUPROFEN. [Concomitant]
     Active Substance: IBUPROFEN
     Dosage: 1200 MG, 1X/DAY
     Route: 048
  2. AZITHROMYCIN ANHYDROUS. [Suspect]
     Active Substance: AZITHROMYCIN ANHYDROUS
     Dosage: 250 MG (1 TABLET) ONE PER DAY FOR 4 DAYS
     Route: 048
  3. PIVALONE (TIXOCORTOL PIVALATE) [Concomitant]
     Active Substance: TIXOCORTOL PIVALATE
     Dosage: 1 SPRAY 2 TO 4 TIMES PER DAY
     Route: 045
  4. AZITHROMYCIN ANHYDROUS. [Suspect]
     Active Substance: AZITHROMYCIN ANHYDROUS
     Dosage: 500 MG (2 TABLETS), ONE PER DAY FOR 1 DAY
     Route: 048
  5. CLARADOL [Concomitant]
     Active Substance: ACETAMINOPHEN
     Dosage: 1 TO 3 PER DAY
     Route: 048

REACTIONS (3)
  - Diarrhoea [Unknown]
  - Vomiting [Unknown]
  - Loss of consciousness [Unknown]
